FAERS Safety Report 13594195 (Version 1)
Quarter: 2017Q2

REPORT INFORMATION
  Report Type: Spontaneous
  Country: US (occurrence: US)
  Receive Date: 20170530
  Receipt Date: 20170530
  Transmission Date: 20170830
  Serious: Yes (Other)
  Sender: FDA-Public Use
  Company Number: US-MYLANLABS-2017M1030914

PATIENT

DRUGS (2)
  1. AMLODIPINE BESYLATE TABLETS, USP [Suspect]
     Active Substance: AMLODIPINE BESYLATE
     Dosage: UNK
  2. AMLODIPINE BESYLATE TABLETS, USP [Suspect]
     Active Substance: AMLODIPINE BESYLATE
     Indication: PRODUCT USED FOR UNKNOWN INDICATION
     Dosage: UNK

REACTIONS (4)
  - Hypersensitivity [Recovered/Resolved]
  - Erythema [Recovered/Resolved]
  - Rash [Recovered/Resolved]
  - Diabetes mellitus inadequate control [Not Recovered/Not Resolved]
